FAERS Safety Report 13985582 (Version 1)
Quarter: 2017Q3

REPORT INFORMATION
  Report Type: Spontaneous
  Country: US (occurrence: US)
  Receive Date: 20170918
  Receipt Date: 20170918
  Transmission Date: 20171128
  Serious: Yes (Other)
  Sender: FDA-Public Use
  Company Number: None

PATIENT
  Age: 49 Year
  Sex: Female
  Weight: 58.5 kg

DRUGS (5)
  1. RANITIDINE. [Concomitant]
     Active Substance: RANITIDINE
  2. VITAMIN B12 [Concomitant]
     Active Substance: CYANOCOBALAMIN
  3. CEPHALEXIN. [Suspect]
     Active Substance: CEPHALEXIN
     Indication: KIDNEY INFECTION
     Dosage: ?          QUANTITY:30 CAPSULE(S);?
     Route: 048
  4. PREDNISOLONE. [Concomitant]
     Active Substance: PREDNISOLONE
  5. DORZOL/TINKLE [Concomitant]

REACTIONS (1)
  - Adverse drug reaction [None]

NARRATIVE: CASE EVENT DATE: 20170915
